FAERS Safety Report 10850121 (Version 1)
Quarter: 2015Q1

REPORT INFORMATION
  Report Type: Spontaneous
  Country: US (occurrence: US)
  Receive Date: 20150221
  Receipt Date: 20150221
  Transmission Date: 20150721
  Serious: Yes (Death)
  Sender: FDA-Public Use
  Company Number: US-BANPHARM-20153486

PATIENT
  Sex: Female

DRUGS (4)
  1. CITALOPRAM [Suspect]
     Active Substance: CITALOPRAM HYDROBROMIDE
  2. ACYCLOVIR. [Suspect]
     Active Substance: ACYCLOVIR
  3. NAPROXEN UNKNOWN PRODUCT [Suspect]
     Active Substance: NAPROXEN
     Route: 048
  4. TRAZODONE [Suspect]
     Active Substance: TRAZODONE HYDROCHLORIDE

REACTIONS (2)
  - Exposure via ingestion [None]
  - Completed suicide [Fatal]
